FAERS Safety Report 7610236-4 (Version None)
Quarter: 2011Q3

REPORT INFORMATION
  Report Type: 
  Country: None (occurrence: None)
  Receive Date: 20110706
  Receipt Date: 20110622
  Transmission Date: 20111222
  Serious: Yes (Death)
  Sender: FDA-Public Use
  Company Number: 2011SP029596

PATIENT
  Age: 67 Year
  Sex: Male

DRUGS (1)
  1. TEMODAL [Suspect]
     Indication: MALIGNANT GLIOMA
     Dosage: PO
     Route: 048

REACTIONS (4)
  - ASPARTATE AMINOTRANSFERASE INCREASED [None]
  - GAMMA-GLUTAMYLTRANSFERASE INCREASED [None]
  - LIVER INJURY [None]
  - ALANINE AMINOTRANSFERASE INCREASED [None]
